FAERS Safety Report 4596677-0 (Version None)
Quarter: 2005Q1

REPORT INFORMATION
  Report Type: 
  Country: None (occurrence: None)
  Receive Date: 20050228
  Receipt Date: 20040423
  Transmission Date: 20050727
  Serious: No
  Sender: FDA-Public Use
  Company Number: 7864

PATIENT
  Age: 25 Year
  Sex: Female

DRUGS (4)
  1. METHOTREXATE [Suspect]
     Indication: BONE SARCOMA
     Dosage: 12 G/M2 PER CYCLE
     Route: 042
  2. CISPLATIN [Concomitant]
  3. DOXORUBICIN HCL [Concomitant]
  4. FOLINIC ACID [Concomitant]

REACTIONS (1)
  - ANAPHYLACTOID REACTION [None]
